FAERS Safety Report 7987409-4 (Version None)
Quarter: 2011Q4

REPORT INFORMATION
  Report Type: 
  Country: None (occurrence: None)
  Receive Date: 20111216
  Receipt Date: 20110509
  Transmission Date: 20120403
  Serious: No
  Sender: FDA-Public Use
  Company Number: US-BRISTOL-MYERS SQUIBB COMPANY-15658362

PATIENT
  Age: 61 Year
  Sex: Male

DRUGS (6)
  1. COGENTIN [Concomitant]
  2. CLONAZEPAM [Concomitant]
  3. ROPINIROLE [Concomitant]
  4. ABILIFY [Suspect]
     Indication: SCHIZOPHRENIA, PARANOID TYPE
     Dosage: REDUCED TO 7.5MG
     Route: 048
     Dates: start: 20091217
  5. REQUIP [Suspect]
     Dates: start: 20091217
  6. ACETAMINOPHEN [Concomitant]

REACTIONS (4)
  - MUSCLE SPASMS [None]
  - RIB FRACTURE [None]
  - MUSCLE TIGHTNESS [None]
  - IRREGULAR SLEEP PHASE [None]
